FAERS Safety Report 4708135-0 (Version None)
Quarter: 2005Q3

REPORT INFORMATION
  Report Type: 
  Country: None (occurrence: None)
  Receive Date: 20050705
  Receipt Date: 20050705
  Transmission Date: 20060218
  Serious: No
  Sender: FDA-Public Use
  Company Number: None

PATIENT
  Age: 14 Year
  Sex: Female

DRUGS (2)
  1. PROMETHAZINE HCL W/ CODEINE [Suspect]
     Dosage: 1 TSP EVERY 8 HRS AS NEEDED
  2. GUAIFEN PSE ER TABLETS [Suspect]
     Dosage: 1 TABLET ONCE A DAY

REACTIONS (3)
  - DRUG DISPENSING ERROR [None]
  - INTERCEPTED MEDICATION ERROR [None]
  - MEDICATION ERROR [None]
